FAERS Safety Report 16912613 (Version 2)
Quarter: 2019Q4

REPORT INFORMATION
  Report Type: Spontaneous
  Country: ES (occurrence: ES)
  Receive Date: 20191014
  Receipt Date: 20191216
  Transmission Date: 20200122
  Serious: Yes (Life-Threatening, Hospitalization)
  Sender: FDA-Public Use
  Company Number: ES-ROCHE-2429872

PATIENT
  Age: 66 Year
  Sex: Male
  Weight: 89.3 kg

DRUGS (25)
  1. TACROLIMUS. [Suspect]
     Active Substance: TACROLIMUS
     Indication: GRAFT VERSUS HOST DISEASE
     Dosage: QD
     Route: 042
     Dates: start: 20181202, end: 20181212
  2. TACROLIMUS. [Suspect]
     Active Substance: TACROLIMUS
     Indication: GRAFT VERSUS HOST DISEASE
     Dosage: QD
     Route: 042
     Dates: start: 20181130, end: 20181201
  3. CELLCEPT [Suspect]
     Active Substance: MYCOPHENOLATE MOFETIL\MYCOPHENOLATE MOFETIL HYDROCHLORIDE
     Indication: GRAFT VERSUS HOST DISEASE
     Dosage: TID
     Route: 065
     Dates: start: 20181227, end: 20190215
  4. URSOCHOL [Concomitant]
     Active Substance: URSODIOL
     Route: 065
     Dates: start: 20181115
  5. POSACONAZOLE [Concomitant]
     Active Substance: POSACONAZOLE
     Route: 065
     Dates: start: 20181114, end: 20190202
  6. PENTAMIDINE [Concomitant]
     Active Substance: PENTAMIDINE
     Route: 065
     Dates: start: 20181221
  7. ISONIAZID;PYRIDOXINE HYDROCHLORIDE [Concomitant]
     Route: 065
     Dates: start: 20181115
  8. TACROLIMUS. [Suspect]
     Active Substance: TACROLIMUS
     Indication: GRAFT VERSUS HOST DISEASE
     Dosage: QD
     Route: 042
     Dates: start: 20181109, end: 20181111
  9. ITACITINIB [Suspect]
     Active Substance: ITACITINIB
     Indication: GRAFT VERSUS HOST DISEASE
     Dosage: QD
     Route: 048
     Dates: start: 20190227
  10. METFORMIN [Concomitant]
     Active Substance: METFORMIN HYDROCHLORIDE
     Route: 065
     Dates: start: 20181115
  11. METHOTREXATE. [Suspect]
     Active Substance: METHOTREXATE
     Indication: GRAFT VERSUS HOST DISEASE
     Dosage: QD
     Route: 065
     Dates: start: 20181101
  12. METHOTREXATE. [Suspect]
     Active Substance: METHOTREXATE
     Indication: GRAFT VERSUS HOST DISEASE
     Dosage: QD
     Route: 065
     Dates: start: 20181030, end: 20181030
  13. TACROLIMUS. [Suspect]
     Active Substance: TACROLIMUS
     Indication: GRAFT VERSUS HOST DISEASE
     Dosage: QD
     Route: 042
     Dates: start: 20181027, end: 20181029
  14. TACROLIMUS. [Suspect]
     Active Substance: TACROLIMUS
     Indication: GRAFT VERSUS HOST DISEASE
     Dosage: QD
     Route: 042
     Dates: start: 20181024, end: 20181026
  15. ITACITINIB [Suspect]
     Active Substance: ITACITINIB
     Indication: GRAFT VERSUS HOST DISEASE
     Dosage: QD
     Route: 048
     Dates: start: 20181026, end: 20190215
  16. VALGANCICLOVIR. [Concomitant]
     Active Substance: VALGANCICLOVIR
     Route: 065
     Dates: start: 20190123, end: 20190202
  17. BENZATHINE BENZYLPENICILLIN [Concomitant]
     Active Substance: PENICILLIN G BENZATHINE
     Route: 065
     Dates: start: 20181119
  18. TACROLIMUS. [Suspect]
     Active Substance: TACROLIMUS
     Indication: GRAFT VERSUS HOST DISEASE
     Dosage: QD
     Route: 042
     Dates: start: 20181113, end: 20181124
  19. TACROLIMUS. [Suspect]
     Active Substance: TACROLIMUS
     Indication: GRAFT VERSUS HOST DISEASE
     Dosage: QD
     Route: 042
     Dates: start: 20181213, end: 20181226
  20. TACROLIMUS. [Suspect]
     Active Substance: TACROLIMUS
     Indication: GRAFT VERSUS HOST DISEASE
     Dosage: QD
     Route: 042
     Dates: start: 20181112, end: 20181112
  21. TACROLIMUS. [Suspect]
     Active Substance: TACROLIMUS
     Indication: GRAFT VERSUS HOST DISEASE
     Dosage: QD
     Route: 042
     Dates: start: 20181105, end: 20181109
  22. OMEPRAZOL [OMEPRAZOLE] [Concomitant]
     Active Substance: OMEPRAZOLE
     Route: 065
     Dates: start: 20181123
  23. TACROLIMUS. [Suspect]
     Active Substance: TACROLIMUS
     Indication: GRAFT VERSUS HOST DISEASE
     Dosage: QD
     Route: 042
     Dates: start: 20181029, end: 20181105
  24. TACROLIMUS. [Suspect]
     Active Substance: TACROLIMUS
     Indication: GRAFT VERSUS HOST DISEASE
     Dosage: QD
     Route: 042
     Dates: start: 20181128, end: 20181129
  25. ACFOL [Concomitant]
     Active Substance: FOLIC ACID
     Route: 065
     Dates: start: 20181115

REACTIONS (7)
  - Cough [Unknown]
  - Febrile neutropenia [Recovered/Resolved]
  - Chest pain [Unknown]
  - Asthenia [Unknown]
  - Intentional product use issue [Unknown]
  - Odynophagia [Unknown]
  - Off label use [Unknown]

NARRATIVE: CASE EVENT DATE: 20190213
